FAERS Safety Report 16681069 (Version 2)
Quarter: 2021Q4

REPORT INFORMATION
  Report Type: Report from Study
  Country: ES (occurrence: ES)
  Receive Date: 20190808
  Receipt Date: 20211001
  Transmission Date: 20220303
  Serious: Yes (Death)
  Sender: FDA-Public Use
  Company Number: None

PATIENT
  Age: 78 Year
  Sex: Female

DRUGS (6)
  1. DULOXETINE [Interacting]
     Active Substance: DULOXETINE
     Indication: Depression
     Route: 048
     Dates: start: 2011, end: 20190403
  2. RIVAROXABAN [Interacting]
     Active Substance: RIVAROXABAN
     Indication: Atrial fibrillation
     Dosage: 20 MG
     Route: 048
     Dates: start: 20161214, end: 20190403
  3. SERC 24 MG COMPRIMIDOS , 60 comprimidos [Concomitant]
     Indication: Vertigo
     Dosage: 24 MG
     Route: 048
     Dates: start: 201807, end: 20190403
  4. AMLODIPINE BESYLATE [Concomitant]
     Active Substance: AMLODIPINE BESYLATE
     Indication: Hypertension
     Dosage: 10 MG
     Route: 048
     Dates: start: 2013, end: 20190403
  5. CANDESARTAN [Concomitant]
     Active Substance: CANDESARTAN
     Indication: Hypertension
     Dosage: 32 MG
     Route: 048
     Dates: start: 201902, end: 20190403
  6. LORAZEPAM [Concomitant]
     Active Substance: LORAZEPAM
     Indication: Insomnia
     Dosage: 1 MG
     Route: 048
     Dates: start: 20190311, end: 20190403

REACTIONS (3)
  - Subdural haematoma [Fatal]
  - Haemorrhage intracranial [Fatal]
  - Drug interaction [Unknown]

NARRATIVE: CASE EVENT DATE: 20190404
